FAERS Safety Report 8996084 (Version 1)
Quarter: 2013Q1

REPORT INFORMATION
  Report Type: Spontaneous
  Country: US (occurrence: US)
  Receive Date: 20130103
  Receipt Date: 20130103
  Transmission Date: 20140127
  Serious: No
  Sender: FDA-Public Use
  Company Number: US-ABBOTT-12P-163-0997542-00

PATIENT
  Age: 50 Year
  Sex: Female
  Weight: 90.8 kg

DRUGS (3)
  1. SYNTHROID [Suspect]
     Dosage: 1 TABLET IN THE MORNING AND 1/2 TABLET IN THE AFTERNOON
     Dates: start: 2007, end: 2012
  2. SYNTHROID [Suspect]
     Dosage: 1/2 TABLET TWICE A DAY
     Dates: start: 2012
  3. MEDROL [Suspect]
     Indication: RHEUMATOID ARTHRITIS
     Dates: end: 2012

REACTIONS (11)
  - Adrenocortical insufficiency acute [Unknown]
  - Bedridden [Unknown]
  - Adverse reaction [Unknown]
  - Hypoaesthesia [Unknown]
  - Swelling face [Unknown]
  - Local swelling [Unknown]
  - Pruritus [Unknown]
  - Rash [Unknown]
  - Blood thyroid stimulating hormone abnormal [Unknown]
  - Product quality issue [Unknown]
  - Product quality issue [Unknown]
